FAERS Safety Report 21223631 (Version 2)
Quarter: 2022Q4

REPORT INFORMATION
  Report Type: Spontaneous
  Country: US (occurrence: US)
  Receive Date: 20220817
  Receipt Date: 20221014
  Transmission Date: 20230112
  Serious: No
  Sender: FDA-Public Use
  Company Number: US-PFIZER INC-PV202200037398

PATIENT
  Age: 13 Year
  Sex: Male

DRUGS (2)
  1. GENOTROPIN [Suspect]
     Active Substance: SOMATROPIN
     Dosage: 2.6 MG, ALTERNATE DAY (ALTERNATE 2.6MG WITH 2.8MG EVERY OTHER DAY)
  2. GENOTROPIN [Suspect]
     Active Substance: SOMATROPIN
     Dosage: 2.8 MG, ALTERNATE DAY (ALTERNATE 2.6MG WITH 2.8MG EVERY OTHER DAY)

REACTIONS (1)
  - Device breakage [Unknown]
